FAERS Safety Report 4587135-8 (Version None)
Quarter: 2005Q1

REPORT INFORMATION
  Report Type: 
  Country: None (occurrence: None)
  Receive Date: 20050218
  Receipt Date: 20050210
  Transmission Date: 20050727
  Serious: Yes (Hospitalization)
  Sender: FDA-Public Use
  Company Number: US-BRISTOL-MYERS SQUIBB COMPANY-12858056

PATIENT
  Age: 65 Year
  Sex: Female

DRUGS (2)
  1. PARAPLATIN [Suspect]
     Indication: OVARIAN CANCER
     Dosage: START DATE:  22-JUN-2004.  DOSE:  AUC 5 (MG/ML-MIN)
     Route: 042
     Dates: start: 20041109, end: 20041109
  2. ATIVAN [Concomitant]
     Dates: start: 20031027

REACTIONS (4)
  - BLOOD BILIRUBIN INCREASED [None]
  - DEHYDRATION [None]
  - NAUSEA [None]
  - VOMITING [None]
